FAERS Safety Report 10462097 (Version 1)
Quarter: 2014Q3

REPORT INFORMATION
  Report Type: Spontaneous
  Country: US (occurrence: US)
  Receive Date: 20140918
  Receipt Date: 20140918
  Transmission Date: 20150326
  Serious: No
  Sender: FDA-Public Use
  Company Number: US-ALLERGAN-1313356US

PATIENT
  Age: 47 Year
  Sex: Female

DRUGS (1)
  1. VANIQA [Suspect]
     Active Substance: EFLORNITHINE HYDROCHLORIDE
     Indication: PRODUCT USED FOR UNKNOWN INDICATION
     Dosage: UNK, BID
     Route: 061
     Dates: start: 201307, end: 20130824

REACTIONS (2)
  - Application site erythema [Recovering/Resolving]
  - Application site pustules [Recovering/Resolving]

NARRATIVE: CASE EVENT DATE: 201307
